FAERS Safety Report 7288632-7 (Version None)
Quarter: 2011Q1

REPORT INFORMATION
  Report Type: 
  Country: None (occurrence: None)
  Receive Date: 20110211
  Receipt Date: 20110207
  Transmission Date: 20110831
  Serious: Yes (Other)
  Sender: FDA-Public Use
  Company Number: GB-BRISTOL-MYERS SQUIBB COMPANY-15483001

PATIENT
  Age: 8 Year

DRUGS (3)
  1. METHOTREXATE [Suspect]
     Route: 065
  2. TRIAMCINOLONE ACETONIDE [Suspect]
     Indication: IRIDOCYCLITIS
     Dosage: 3 MONTHS LATER 2ND INJ ADMINISTERED ORBITAL FLOOR INJECTION
  3. DEXAMETHASONE [Suspect]
     Indication: IRIDOCYCLITIS
     Dosage: 3 MONTHS LATER 2ND INJ ADMINISTERED. ORBITAL FLOOR INJECTION

REACTIONS (2)
  - IRIDOCYCLITIS [None]
  - CUSHINGOID [None]
